FAERS Safety Report 12752946 (Version 2)
Quarter: 2017Q3

REPORT INFORMATION
  Report Type: Spontaneous
  Country: US (occurrence: US)
  Receive Date: 20160915
  Receipt Date: 20170918
  Transmission Date: 20171127
  Serious: Yes (Hospitalization)
  Sender: FDA-Public Use
  Company Number: US-SIGMA-TAU US-2016STPI000681

PATIENT
  Age: 46 Year
  Sex: Male

DRUGS (1)
  1. MATULANE [Suspect]
     Active Substance: PROCARBAZINE HYDROCHLORIDE
     Indication: NON-HODGKIN^S LYMPHOMA
     Dosage: 50 MG, QD
     Route: 048
     Dates: start: 20160608, end: 201608

REACTIONS (2)
  - Drug ineffective [None]
  - Pulmonary embolism [Unknown]

NARRATIVE: CASE EVENT DATE: 201608
